FAERS Safety Report 20864485 (Version 2)
Quarter: 2025Q2

REPORT INFORMATION
  Report Type: Report from Study
  Country: ES (occurrence: ES)
  Receive Date: 20220524
  Receipt Date: 20250620
  Transmission Date: 20250717
  Serious: Yes (Hospitalization)
  Sender: ABBVIE
  Company Number: ES-ABBVIE-22K-144-4405340-00

PATIENT
  Age: 63 Year
  Sex: Male

DRUGS (19)
  1. SKYRIZI [Suspect]
     Active Substance: RISANKIZUMAB-RZAA
     Indication: Psoriasis
     Route: 058
     Dates: start: 20220104, end: 20220131
  2. SKYRIZI [Suspect]
     Active Substance: RISANKIZUMAB-RZAA
     Dosage: REASON FOR DISCONTINUATION INFECTIOUS ENDOCARDITIS
     Route: 058
     Dates: start: 20220131, end: 20230214
  3. SKYRIZI [Suspect]
     Active Substance: RISANKIZUMAB-RZAA
     Route: 058
     Dates: start: 20230801
  4. RIFAMPIN [Concomitant]
     Active Substance: RIFAMPIN
     Indication: Endocarditis
     Route: 048
     Dates: start: 20220414
  5. SPIRONOLACTONE [Concomitant]
     Active Substance: SPIRONOLACTONE
     Indication: Cardiac failure
     Route: 048
     Dates: start: 20230609
  6. DUTASTERIDE [Concomitant]
     Active Substance: DUTASTERIDE
     Indication: Benign prostatic hyperplasia
     Route: 048
     Dates: start: 20240126
  7. TAMSULOSIN HYDROCHLORIDE [Concomitant]
     Active Substance: TAMSULOSIN HYDROCHLORIDE
     Indication: Benign prostatic hyperplasia
     Route: 048
     Dates: start: 20240126
  8. COVID vaccine ?Pfizer/BioNTech [Concomitant]
     Indication: COVID-19 prophylaxis
     Route: 030
     Dates: start: 20210929, end: 20210929
  9. COVID vaccine ?Pfizer/BioNTech [Concomitant]
     Indication: COVID-19 prophylaxis
     Route: 030
     Dates: start: 20220503, end: 20220503
  10. COVID vaccine ?Pfizer/BioNTech [Concomitant]
     Indication: COVID-19 prophylaxis
     Route: 030
     Dates: start: 20221117, end: 20221117
  11. COVID vaccine ?Pfizer/BioNTech [Concomitant]
     Indication: COVID-19 prophylaxis
     Route: 030
     Dates: start: 20231112, end: 20231121
  12. METFORMIN [Concomitant]
     Active Substance: METFORMIN HYDROCHLORIDE
     Indication: Diabetes mellitus
     Route: 048
     Dates: start: 20210809
  13. TORSEMIDE [Concomitant]
     Active Substance: TORSEMIDE
     Indication: Cardiac failure
     Route: 048
     Dates: start: 20220518
  14. ENOXAPARIN [Concomitant]
     Active Substance: ENOXAPARIN
     Indication: Endocarditis
     Route: 058
     Dates: start: 20220416
  15. CEFAZOLIN [Concomitant]
     Active Substance: CEFAZOLIN
     Indication: Endocarditis
     Route: 048
     Dates: start: 20220418, end: 20220606
  16. ENALAPRIL [Concomitant]
     Active Substance: ENALAPRIL
     Indication: Myocardial ischaemia
     Route: 048
     Dates: start: 20110923
  17. ATORVASTATIN [Concomitant]
     Active Substance: ATORVASTATIN
     Indication: Dyslipidaemia
     Route: 048
     Dates: start: 20151029
  18. WARFARIN [Concomitant]
     Active Substance: WARFARIN
     Indication: Prosthesis implantation
     Route: 048
     Dates: start: 20170215
  19. carvedilol/lvabradin [Concomitant]
     Indication: Myocardial ischaemia
     Route: 048
     Dates: start: 20210118

REACTIONS (1)
  - Endocarditis [Recovering/Resolving]

NARRATIVE: CASE EVENT DATE: 20220414
